FAERS Safety Report 9336193 (Version 2)
Quarter: 2013Q4

REPORT INFORMATION
  Report Type: Spontaneous
  Country: US (occurrence: US)
  Receive Date: 20130607
  Receipt Date: 20131114
  Transmission Date: 20140711
  Serious: No
  Sender: FDA-Public Use
  Company Number: US-BIOGENIDEC-2013BI050912

PATIENT
  Sex: Female

DRUGS (1)
  1. TYSABRI [Suspect]
     Indication: MULTIPLE SCLEROSIS
     Route: 042
     Dates: start: 20121128

REACTIONS (12)
  - Incontinence [Not Recovered/Not Resolved]
  - Vulvovaginal discomfort [Not Recovered/Not Resolved]
  - Type 2 diabetes mellitus [Not Recovered/Not Resolved]
  - Fibromyalgia [Not Recovered/Not Resolved]
  - Sensory loss [Not Recovered/Not Resolved]
  - Dry skin [Not Recovered/Not Resolved]
  - Sensation of heaviness [Not Recovered/Not Resolved]
  - Muscle atrophy [Not Recovered/Not Resolved]
  - Loss of control of legs [Not Recovered/Not Resolved]
  - Stress [Not Recovered/Not Resolved]
  - Poor quality sleep [Not Recovered/Not Resolved]
  - General physical health deterioration [Unknown]
